FAERS Safety Report 5705790-3 (Version None)
Quarter: 2008Q2

REPORT INFORMATION
  Report Type: 
  Country: None (occurrence: None)
  Receive Date: 20080411
  Receipt Date: 20080402
  Transmission Date: 20081010
  Serious: Yes (Hospitalization)
  Sender: FDA-Public Use
  Company Number: 2008-02220

PATIENT
  Age: 62 Year
  Sex: Female
  Weight: 63.5 kg

DRUGS (7)
  1. PRIMIDONE (WATSON LABORATORIES) TABLET, 250MG [Suspect]
     Indication: CONVULSION
     Dosage: 1 TABLET, BID, ORAL;
     Route: 048
     Dates: start: 20070901
  2. AZMACORT [Suspect]
     Indication: RESPIRATORY DISORDER
     Dosage: 2 PUFFS, QAM Q PM; 1 PUFF, QAM 2 PUFFS QPM
     Dates: end: 20080330
  3. AZMACORT [Suspect]
     Indication: RESPIRATORY DISORDER
     Dosage: 2 PUFFS, QAM Q PM; 1 PUFF, QAM 2 PUFFS QPM
     Dates: start: 20080101
  4. DEPAKOTE-SLOW RELASE (VALPROATE SEMISODIUM) 250MG [Suspect]
     Indication: CONVULSION
     Dates: start: 20041001
  5. ANAESTHETICS() [Suspect]
     Indication: GALLBLADDER OPERATION
     Dates: start: 20080215
  6. DILANTIN [Concomitant]
  7. LEVOTHROID, 0.88 MCG [Concomitant]

REACTIONS (18)
  - ASTHENIA [None]
  - BALANCE DISORDER [None]
  - BLEPHAROSPASM [None]
  - CHOLELITHIASIS [None]
  - CONFUSIONAL STATE [None]
  - DEPRESSED MOOD [None]
  - DRUG INTERACTION [None]
  - DRY MOUTH [None]
  - DYSARTHRIA [None]
  - DYSPHONIA [None]
  - FATIGUE [None]
  - FEELING DRUNK [None]
  - HEADACHE [None]
  - MENTAL IMPAIRMENT [None]
  - MOOD SWINGS [None]
  - SLUGGISHNESS [None]
  - STRESS [None]
  - WEIGHT DECREASED [None]
